FAERS Safety Report 14102455 (Version 1)
Quarter: 2017Q4

REPORT INFORMATION
  Report Type: Spontaneous
  Country: US (occurrence: None)
  Receive Date: 20171018
  Receipt Date: 20171018
  Transmission Date: 20180321
  Serious: Yes (Other)
  Sender: FDA-Public Use
  Company Number: None

PATIENT
  Sex: Female
  Weight: 88.45 kg

DRUGS (3)
  1. FORTEO [Suspect]
     Active Substance: TERIPARATIDE
     Indication: PELVIC FRACTURE
     Route: 058
     Dates: start: 201708
  2. FORTEO [Suspect]
     Active Substance: TERIPARATIDE
     Indication: PATHOLOGICAL FRACTURE
     Route: 058
     Dates: start: 201708
  3. FORTEO [Suspect]
     Active Substance: TERIPARATIDE
     Indication: FRACTURE NONUNION
     Route: 058
     Dates: start: 201708

REACTIONS (4)
  - Muscle spasms [None]
  - Pain [None]
  - Fatigue [None]
  - Arthralgia [None]
